FAERS Safety Report 17796169 (Version 1)
Quarter: 2020Q2

REPORT INFORMATION
  Report Type: Spontaneous
  Country: DE (occurrence: DE)
  Receive Date: 20200517
  Receipt Date: 20200517
  Transmission Date: 20200714
  Serious: Yes (Other)
  Sender: FDA-Public Use
  Company Number: NVSC2020DE133583

PATIENT
  Age: 70 Year
  Sex: Male

DRUGS (2)
  1. PROVAS [Suspect]
     Active Substance: VALSARTAN
     Indication: PRODUCT USED FOR UNKNOWN INDICATION
     Dosage: 160 MG, QD (IN THE MORNING)
     Route: 065
     Dates: end: 20200402
  2. PROVAS [Suspect]
     Active Substance: VALSARTAN
     Dosage: 160 MG, QD (IN THE EVENING)
     Route: 065
     Dates: start: 202004

REACTIONS (3)
  - Sleep apnoea syndrome [Not Recovered/Not Resolved]
  - Inappropriate schedule of product administration [Not Recovered/Not Resolved]
  - Hypertension [Unknown]

NARRATIVE: CASE EVENT DATE: 2018
